FAERS Safety Report 4961801-4 (Version None)
Quarter: 2006Q1

REPORT INFORMATION
  Report Type: 
  Country: None (occurrence: None)
  Receive Date: 20060329
  Receipt Date: 20060317
  Transmission Date: 20060701
  Serious: Yes (Other)
  Sender: FDA-Public Use
  Company Number: 2006037949

PATIENT
  Sex: Male

DRUGS (1)
  1. DRAMAMINE [Suspect]
     Dosage: 24 TABLETS AT ONCE, ORAL
     Route: 048

REACTIONS (2)
  - OVERDOSE [None]
  - VOMITING [None]
